FAERS Safety Report 7347618-4 (Version None)
Quarter: 2011Q1

REPORT INFORMATION
  Report Type: 
  Country: None (occurrence: None)
  Receive Date: 20110311
  Receipt Date: 20110308
  Transmission Date: 20110831
  Serious: Yes (Hospitalization)
  Sender: FDA-Public Use
  Company Number: A0849015A

PATIENT
  Age: 55 Year
  Sex: Female
  Weight: 93.6 kg

DRUGS (3)
  1. AVANDIA [Suspect]
     Indication: DIABETES MELLITUS
     Route: 048
     Dates: end: 20040801
  2. GLUCOPHAGE [Concomitant]
  3. AMARYL [Concomitant]

REACTIONS (6)
  - CARDIAC FAILURE CONGESTIVE [None]
  - CAROTID ARTERY OCCLUSION [None]
  - CEREBROVASCULAR ACCIDENT [None]
  - CARDIOMYOPATHY [None]
  - ISCHAEMIC CARDIOMYOPATHY [None]
  - ATRIAL FIBRILLATION [None]
